FAERS Safety Report 14529557 (Version 2)
Quarter: 2018Q1

REPORT INFORMATION
  Report Type: Spontaneous
  Country: IT (occurrence: IT)
  Receive Date: 20180214
  Receipt Date: 20180223
  Transmission Date: 20180509
  Serious: Yes (Other)
  Sender: FDA-Public Use
  Company Number: IT-AMGEN-ITASP2018017799

PATIENT
  Age: 75 Year
  Sex: Female

DRUGS (4)
  1. CALCIUM CITRATE [Concomitant]
     Active Substance: CALCIUM CITRATE
     Indication: BLOOD CALCIUM DECREASED
     Dosage: 500 MG, QD
     Route: 048
     Dates: start: 201407
  2. PROLIA [Suspect]
     Active Substance: DENOSUMAB
     Indication: HYPERPARATHYROIDISM PRIMARY
     Dosage: 60 MG, Q6MO
     Route: 058
     Dates: start: 201407
  3. CHOLECALCIFEROL [Concomitant]
     Active Substance: CHOLECALCIFEROL
     Indication: BLOOD 25-HYDROXYCHOLECALCIFEROL DECREASED
     Dosage: 100000 IU, UNK
     Dates: start: 201407
  4. PROLIA [Suspect]
     Active Substance: DENOSUMAB
     Indication: OSTEOPOROSIS

REACTIONS (2)
  - Spinal fracture [Recovered/Resolved]
  - Off label use [Unknown]
